FAERS Safety Report 15608917 (Version 1)
Quarter: 2018Q4

REPORT INFORMATION
  Report Type: Spontaneous
  Country: US (occurrence: US)
  Receive Date: 20181112
  Receipt Date: 20181112
  Transmission Date: 20190205
  Serious: Yes (Other)
  Sender: FDA-Public Use
  Company Number: US-SA-2018SA309100

PATIENT

DRUGS (2)
  1. TAXOTERE [Suspect]
     Active Substance: DOCETAXEL
     Dosage: UNK UNK, QCY
     Route: 041
     Dates: start: 20120113, end: 20120113
  2. TAXOTERE [Suspect]
     Active Substance: DOCETAXEL
     Dosage: UNK UNK, QCY
     Route: 041
     Dates: start: 20120830, end: 20120830

REACTIONS (2)
  - Alopecia [Not Recovered/Not Resolved]
  - Emotional distress [Unknown]
